FAERS Safety Report 7028589-7 (Version None)
Quarter: 2010Q4

REPORT INFORMATION
  Report Type: 
  Country: None (occurrence: None)
  Receive Date: 20101005
  Receipt Date: 20100927
  Transmission Date: 20110411
  Serious: Yes (Hospitalization)
  Sender: FDA-Public Use
  Company Number: US-JNJFOC-20100908499

PATIENT
  Age: 33 Year
  Sex: Female
  Weight: 95.26 kg

DRUGS (2)
  1. TOPAMAX [Suspect]
     Indication: MIGRAINE
     Route: 048
  2. TOPAMAX [Suspect]
     Route: 048

REACTIONS (4)
  - APHASIA [None]
  - CONVULSION [None]
  - DRUG INEFFECTIVE [None]
  - SENSORY LOSS [None]
